FAERS Safety Report 25237056 (Version 3)
Quarter: 2025Q4

REPORT INFORMATION
  Report Type: Report from Study
  Country: US (occurrence: US)
  Receive Date: 20250425
  Receipt Date: 20251024
  Transmission Date: 20260117
  Serious: Yes (Death, Hospitalization)
  Sender: ABBVIE
  Company Number: US-ABBVIE-6233851

PATIENT
  Age: 88 Year
  Sex: Male
  Weight: 59 kg

DRUGS (1)
  1. RINVOQ [Suspect]
     Active Substance: UPADACITINIB
     Indication: Crohn^s disease
     Route: 048
     Dates: start: 20250328

REACTIONS (12)
  - Acute respiratory failure [Fatal]
  - Malaise [Unknown]
  - Gait disturbance [Unknown]
  - Anaemia [Unknown]
  - Blood urea increased [Unknown]
  - Blood creatinine increased [Unknown]
  - Glomerular filtration rate decreased [Unknown]
  - Oral candidiasis [Unknown]
  - Hypervolaemia [Fatal]
  - Acute kidney injury [Fatal]
  - Blood pressure fluctuation [Unknown]
  - Pneumonia [Unknown]

NARRATIVE: CASE EVENT DATE: 20250101
